FAERS Safety Report 9308990 (Version 2)
Quarter: 2013Q2

REPORT INFORMATION
  Report Type: Spontaneous
  Country: US (occurrence: US)
  Receive Date: 20130524
  Receipt Date: 20130604
  Transmission Date: 20140414
  Serious: Yes (Other)
  Sender: FDA-Public Use
  Company Number: US-OPTIMER-20130178

PATIENT
  Age: 79 Year
  Sex: Female

DRUGS (3)
  1. FIDAXOMICIN [Suspect]
     Indication: CLOSTRIDIUM DIFFICILE COLITIS
     Dosage: UNKNOWN
     Dates: start: 20130106, end: 20130116
  2. LEVOFLOXACIN [Concomitant]
     Dosage: UNKNOWN
     Dates: start: 20130107, end: 20130112
  3. DORIPENEM [Concomitant]
     Dosage: UNKNOWN
     Dates: start: 20130105, end: 20130107

REACTIONS (5)
  - Blood creatinine increased [Unknown]
  - Clostridium difficile colitis [Unknown]
  - Disease recurrence [Unknown]
  - Off label use [Unknown]
  - White blood cell count increased [None]
